FAERS Safety Report 8236826-6 (Version None)
Quarter: 2012Q1

REPORT INFORMATION
  Report Type: 
  Country: None (occurrence: None)
  Receive Date: 20120327
  Receipt Date: 20120321
  Transmission Date: 20120608
  Serious: Yes (Other)
  Sender: FDA-Public Use
  Company Number: TW-PFIZER INC-2012075316

PATIENT

DRUGS (3)
  1. SINEQUAN [Suspect]
     Dosage: UNK
  2. SINEQUAN [Suspect]
     Dosage: 35 MG, 1X/DAY (HS)
     Route: 048
  3. ATIVAN [Concomitant]

REACTIONS (1)
  - INTRAOCULAR PRESSURE INCREASED [None]
